FAERS Safety Report 5920363-5 (Version None)
Quarter: 2008Q4

REPORT INFORMATION
  Report Type: 
  Country: None (occurrence: None)
  Receive Date: 20081016
  Receipt Date: 20081007
  Transmission Date: 20090506
  Serious: Yes (Other)
  Sender: FDA-Public Use
  Company Number: PHHY2008AU23219

PATIENT
  Sex: Male

DRUGS (2)
  1. CLOZARIL [Suspect]
     Dosage: 350MG NOCTE
  2. CLOZARIL [Suspect]
     Dosage: 37 X 100 MG
     Dates: start: 20080929

REACTIONS (9)
  - AGGRESSION [None]
  - AGITATION [None]
  - CARDIAC ENZYMES INCREASED [None]
  - ELECTROCARDIOGRAM QT PROLONGED [None]
  - NEUTROPHIL COUNT INCREASED [None]
  - OVERDOSE [None]
  - SOMNOLENCE [None]
  - TACHYCARDIA [None]
  - WHITE BLOOD CELL COUNT INCREASED [None]
